FAERS Safety Report 4886242-X (Version None)
Quarter: 2006Q1

REPORT INFORMATION
  Report Type: 
  Country: None (occurrence: None)
  Receive Date: 20060118
  Receipt Date: 20060106
  Transmission Date: 20060701
  Serious: Yes (Other)
  Sender: FDA-Public Use
  Company Number: 2006004449

PATIENT
  Age: 64 Year
  Sex: Female
  Weight: 61.2356 kg

DRUGS (11)
  1. NEURONTIN [Suspect]
     Indication: TRIGEMINAL NEURALGIA
     Dosage: 300 MG (100 MG, 3 IN 1 D); UNKNOWN
     Dates: start: 20030601
  2. NEURONTIN [Suspect]
     Indication: TRIGEMINAL NEURALGIA
     Dosage: 300 MG (100 MG, 3 IN 1 D); UNKNOWN
     Dates: start: 20051220
  3. HYDROCODONE BITARTRATE [Suspect]
     Indication: TRIGEMINAL NEURALGIA
     Dates: end: 20051220
  4. RENACIDIN (CITRIC ACID, GLUCONIC ACID) [Concomitant]
  5. BACLOFEN [Concomitant]
  6. ARICEPT [Concomitant]
  7. TEGRETOL [Concomitant]
  8. EVISTA [Concomitant]
  9. TERIPARATIDE [Concomitant]
  10. REBIF [Concomitant]
  11. IBUPROFEN [Concomitant]

REACTIONS (2)
  - DRUG INEFFECTIVE [None]
  - HEADACHE [None]
